APPROVED DRUG PRODUCT: PHENERGAN
Active Ingredient: PROMETHAZINE HYDROCHLORIDE
Strength: 25MG **Federal Register determination that product was not discontinued or withdrawn for safety or effectiveness reasons**
Dosage Form/Route: TABLET;ORAL
Application: N007935 | Product #003
Applicant: DELCOR ASSET CORP
Approved: Approved Prior to Jan 1, 1982 | RLD: Yes | RS: No | Type: DISCN